FAERS Safety Report 16472167 (Version 2)
Quarter: 2019Q4

REPORT INFORMATION
  Report Type: Report from Study
  Country: None (occurrence: US)
  Receive Date: 20190625
  Receipt Date: 20191017
  Transmission Date: 20200122
  Serious: Yes (Hospitalization, Other)
  Sender: FDA-Public Use
  Company Number: US-ABBVIE-19K-163-2828849-00

PATIENT
  Age: 62 Year
  Sex: Male

DRUGS (2)
  1. RITUXAN [Concomitant]
     Active Substance: RITUXIMAB
     Indication: CHRONIC LYMPHOCYTIC LEUKAEMIA
     Route: 042
  2. VENCLEXTA [Suspect]
     Active Substance: VENETOCLAX
     Indication: CHRONIC LYMPHOCYTIC LEUKAEMIA
     Route: 048
     Dates: start: 20170703

REACTIONS (12)
  - Fluid retention [Unknown]
  - Fatigue [Unknown]
  - Sepsis [Recovered/Resolved]
  - Wound [Recovering/Resolving]
  - Sinus rhythm [Unknown]
  - Arterial injury [Unknown]
  - Sensitivity to weather change [Unknown]
  - Arthritis [Not Recovered/Not Resolved]
  - Haematoma [Unknown]
  - Respiratory disorder [Unknown]
  - Atrial flutter [Not Recovered/Not Resolved]
  - Asthenia [Not Recovered/Not Resolved]

NARRATIVE: CASE EVENT DATE: 201707
